FAERS Safety Report 7407658-3 (Version None)
Quarter: 2011Q2

REPORT INFORMATION
  Report Type: 
  Country: None (occurrence: None)
  Receive Date: 20110405
  Receipt Date: 20110328
  Transmission Date: 20111010
  Serious: Yes (Other)
  Sender: FDA-Public Use
  Company Number: 2011EN000090

PATIENT
  Age: 76 Year
  Sex: Male
  Weight: 100 kg

DRUGS (10)
  1. FENTANYL [Concomitant]
  2. AMIODARONE [Concomitant]
  3. MIDAZOLAM [Concomitant]
  4. HEPARIN [Concomitant]
  5. VANCOMYCIN [Concomitant]
  6. COMBIVENT [Concomitant]
  7. ABELCET [Suspect]
     Indication: EVIDENCE BASED TREATMENT
     Dosage: 500 MG;QD;IV
     Route: 042
     Dates: start: 20110225, end: 20110305
  8. MEROPENEM [Concomitant]
  9. OMEAPRAZOLE [Concomitant]
  10. FUROSEMIDE [Concomitant]

REACTIONS (3)
  - TACHYCARDIA [None]
  - HYPERTENSION [None]
  - RESPIRATORY RATE INCREASED [None]
